FAERS Safety Report 21987817 (Version 1)
Quarter: 2023Q1

REPORT INFORMATION
  Report Type: Spontaneous
  Country: US (occurrence: US)
  Receive Date: 20230214
  Receipt Date: 20230214
  Transmission Date: 20230418
  Serious: Yes (Other)
  Sender: FDA-Public Use
  Company Number: US-SUN PHARMACEUTICAL INDUSTRIES LTD-2023R1-378307

PATIENT
  Sex: Male

DRUGS (2)
  1. DIGOXIN [Suspect]
     Active Substance: DIGOXIN
     Indication: Foetal cardiac disorder
     Dosage: 500 MICROGRAM, BID
     Route: 064
  2. DIGOXIN [Suspect]
     Active Substance: DIGOXIN
     Dosage: 250 MICROGRAM, BID
     Route: 064

REACTIONS (4)
  - Premature baby [Unknown]
  - Patent ductus arteriosus [Unknown]
  - Ductus arteriosus premature closure [Unknown]
  - Foetal exposure during pregnancy [Unknown]
